FAERS Safety Report 13611987 (Version 2)
Quarter: 2017Q2

REPORT INFORMATION
  Report Type: Spontaneous
  Country: TN (occurrence: TN)
  Receive Date: 20170605
  Receipt Date: 20170612
  Transmission Date: 20170830
  Serious: Yes (Life-Threatening, Other)
  Sender: FDA-Public Use
  Company Number: TN-MYLANLABS-2017M1032987

PATIENT

DRUGS (3)
  1. CLOZAPINE. [Suspect]
     Active Substance: CLOZAPINE
     Indication: BIPOLAR DISORDER
  2. LITHIUM. [Concomitant]
     Active Substance: LITHIUM
     Indication: BIPOLAR DISORDER
  3. VALPROATE [Concomitant]
     Active Substance: VALPROIC ACID
     Indication: BIPOLAR DISORDER

REACTIONS (19)
  - Pancreatitis [Recovered/Resolved]
  - Drug reaction with eosinophilia and systemic symptoms [Recovered/Resolved]
  - Hepatitis [Recovered/Resolved]
  - Inflammatory marker increased [Recovered/Resolved]
  - Microalbuminuria [Recovered/Resolved]
  - Odynophagia [Recovered/Resolved]
  - Lymphocyte morphology abnormal [Recovered/Resolved]
  - Pyrexia [Recovered/Resolved]
  - Influenza like illness [Recovered/Resolved]
  - Blood creatinine increased [Recovered/Resolved]
  - Reticulocyte count decreased [Recovered/Resolved]
  - Eosinophilia [Recovered/Resolved]
  - Normochromic normocytic anaemia [Recovered/Resolved]
  - Thyroid function test abnormal [Recovered/Resolved]
  - Haematuria [Recovered/Resolved]
  - Electrocardiogram T wave abnormal [Recovered/Resolved]
  - Product use in unapproved indication [Unknown]
  - Diabetes mellitus [Recovered/Resolved]
  - Multiple organ dysfunction syndrome [Recovered/Resolved]
